FAERS Safety Report 5338228-9 (Version None)
Quarter: 2007Q2

REPORT INFORMATION
  Report Type: 
  Country: None (occurrence: None)
  Receive Date: 20070530
  Receipt Date: 20070523
  Transmission Date: 20071010
  Serious: Yes (Life-Threatening)
  Sender: FDA-Public Use
  Company Number: PTWYE737728MAY07

PATIENT
  Sex: Male

DRUGS (8)
  1. TAZOBAC [Suspect]
     Indication: ENDOSCOPIC RETROGRADE CHOLANGIOPANCREATOGRAPHY
     Dosage: 4000 MG + 500 MG
     Route: 042
     Dates: start: 20070419, end: 20070419
  2. MIANSERIN HYDROCHLORIDE [Concomitant]
     Route: 048
     Dates: start: 20070127
  3. CYCLOSPORINE [Concomitant]
     Dates: start: 20070127
  4. TRIMETHOPRIM [Concomitant]
     Route: 048
     Dates: start: 20070127
  5. PREDNISOLONE [Concomitant]
     Dates: start: 20070127
  6. ACETYLSALICYLIC ACID SRT [Concomitant]
     Dates: start: 20070127
  7. LORAZEPAM [Concomitant]
     Route: 048
     Dates: start: 20070127
  8. SULFAMETHOXAZOLE [Concomitant]
     Route: 048
     Dates: start: 20070127

REACTIONS (4)
  - FACE OEDEMA [None]
  - LARYNGEAL OEDEMA [None]
  - RASH [None]
  - RASH MACULAR [None]
